FAERS Safety Report 8413466-7 (Version None)
Quarter: 2012Q2

REPORT INFORMATION
  Report Type: 
  Country: None (occurrence: None)
  Receive Date: 20120605
  Receipt Date: 20120530
  Transmission Date: 20120825
  Serious: Yes (Other)
  Sender: FDA-Public Use
  Company Number: MX-ROCHE-1074891

PATIENT
  Sex: Female
  Weight: 63 kg

DRUGS (4)
  1. FLUOXETINE [Concomitant]
     Indication: DEPRESSION
     Route: 048
  2. TAMOXIFEN CITRATE [Concomitant]
     Indication: BREAST CANCER
     Route: 048
  3. OMEPRAZOLE [Concomitant]
     Indication: GASTRITIS
     Route: 048
  4. HERCEPTIN [Suspect]
     Indication: BREAST CANCER
     Route: 042
     Dates: end: 20120101

REACTIONS (1)
  - BRADYCARDIA [None]
